FAERS Safety Report 9798607 (Version 1)
Quarter: 2013Q4

REPORT INFORMATION
  Report Type: Spontaneous
  Country: FR (occurrence: None)
  Receive Date: 20131231
  Receipt Date: 20131231
  Transmission Date: 20140711
  Serious: Yes (Hospitalization)
  Sender: FDA-Public Use
  Company Number: 1953801

PATIENT
  Age: 56 Year
  Sex: Male

DRUGS (3)
  1. CARBOPLATIN [Suspect]
     Indication: CHEMOTHERAPY
     Route: 042
     Dates: start: 20111128
  2. PACLITAXEL [Concomitant]
  3. AZANTAC [Concomitant]

REACTIONS (7)
  - Angioedema [None]
  - Laryngeal oedema [None]
  - Rash [None]
  - Dyspnoea [None]
  - Skin test positive [None]
  - Hypersensitivity [None]
  - No reaction on previous exposure to drug [None]
